FAERS Safety Report 19046011 (Version 1)
Quarter: 2021Q1

REPORT INFORMATION
  Report Type: Spontaneous
  Country: US (occurrence: US)
  Receive Date: 20210323
  Receipt Date: 20210323
  Transmission Date: 20210420
  Serious: No
  Sender: FDA-Public Use
  Company Number: US-GLAXOSMITHKLINE-US2021AMR063847

PATIENT
  Sex: Male
  Weight: 70.3 kg

DRUGS (2)
  1. WELLBUTRIN XL [Suspect]
     Active Substance: BUPROPION HYDROCHLORIDE
     Indication: DEPRESSION
     Dosage: 150 MG, QD,(150 MG,1 IN 1 D)
     Route: 048
  2. WELLBUTRIN XL [Suspect]
     Active Substance: BUPROPION HYDROCHLORIDE
     Dosage: 300 MG, QD,(300 MG,1 IN 1 D)
     Route: 048

REACTIONS (5)
  - Extra dose administered [Unknown]
  - Psychomotor hyperactivity [Recovered/Resolved]
  - Therapeutic product effect incomplete [Unknown]
  - Energy increased [Recovered/Resolved]
  - Sleep disorder [Recovered/Resolved]
